FAERS Safety Report 8141451-1 (Version None)
Quarter: 2012Q1

REPORT INFORMATION
  Report Type: 
  Country: None (occurrence: None)
  Receive Date: 20120216
  Receipt Date: 20111116
  Transmission Date: 20120608
  Serious: Yes (Other)
  Sender: FDA-Public Use
  Company Number: US-ROCHE-1037640

PATIENT

DRUGS (1)
  1. AVASTIN [Suspect]
     Indication: GLIOBLASTOMA

REACTIONS (2)
  - COGNITIVE DISORDER [None]
  - CEREBRAL ATROPHY [None]
